FAERS Safety Report 6133526-3 (Version None)
Quarter: 2009Q1

REPORT INFORMATION
  Report Type: 
  Country: None (occurrence: None)
  Receive Date: 20090326
  Receipt Date: 20090317
  Transmission Date: 20090719
  Serious: Yes (Hospitalization)
  Sender: FDA-Public Use
  Company Number: BE-AVENTIS-200911425GDDC

PATIENT
  Weight: 51 kg

DRUGS (4)
  1. DOCETAXEL [Suspect]
     Indication: NON-SMALL CELL LUNG CANCER
     Route: 042
     Dates: start: 20080318, end: 20080318
  2. DURAGESIC-100 [Concomitant]
     Dosage: DOSE: 25 MG/72 HRS
  3. MS DIRECT [Concomitant]
  4. DAFALGAN                           /00020001/ [Concomitant]

REACTIONS (4)
  - CONFUSIONAL STATE [None]
  - EPILEPSY [None]
  - ISCHAEMIC STROKE [None]
  - NERVOUS SYSTEM DISORDER [None]
